FAERS Safety Report 8458452-6 (Version None)
Quarter: 2012Q2

REPORT INFORMATION
  Report Type: 
  Country: None (occurrence: None)
  Receive Date: 20120622
  Receipt Date: 20120618
  Transmission Date: 20120825
  Serious: Yes (Hospitalization, Other)
  Sender: FDA-Public Use
  Company Number: IT-BRISTOL-MYERS SQUIBB COMPANY-16637522

PATIENT
  Age: 47 Year
  Sex: Female

DRUGS (3)
  1. REYATAZ [Suspect]
     Indication: HIV INFECTION
     Dosage: 1 DF = 300 UNITS NOS
     Dates: start: 20111101
  2. TRUVADA [Suspect]
     Indication: HIV INFECTION
     Dosage: REYATAZ 300/RIT
     Dates: start: 20111101
  3. RITONAVIR [Suspect]
     Indication: HIV INFECTION
     Dates: start: 20111101

REACTIONS (2)
  - OPTIC NEURITIS [None]
  - HYPERBILIRUBINAEMIA [None]
